FAERS Safety Report 4392477-5 (Version None)
Quarter: 2004Q3

REPORT INFORMATION
  Report Type: 
  Country: None (occurrence: None)
  Receive Date: 20040702
  Receipt Date: 20040224
  Transmission Date: 20050211
  Serious: Yes (Other)
  Sender: FDA-Public Use
  Company Number: 2004UW03337

PATIENT
  Age: 55 Year
  Sex: Female

DRUGS (3)
  1. CRESTOR [Suspect]
  2. LOTENSIN [Suspect]
  3. BENICAR [Concomitant]

REACTIONS (2)
  - COUGH [None]
  - THROAT IRRITATION [None]
